FAERS Safety Report 17302618 (Version 1)
Quarter: 2020Q1

REPORT INFORMATION
  Report Type: Report from Study
  Country: US (occurrence: US)
  Receive Date: 20200122
  Receipt Date: 20200122
  Transmission Date: 20200409
  Serious: Yes (Hospitalization)
  Sender: FDA-Public Use
  Company Number: US-TAIHO ONCOLOGY  INC-EU-2020-00101

PATIENT
  Age: 61 Year
  Sex: Female
  Weight: 76.27 kg

DRUGS (1)
  1. LONSURF [Suspect]
     Active Substance: TIPIRACIL HYDROCHLORIDE\TRIFLURIDINE
     Indication: COLON CANCER
     Dosage: CYCLE NUMBER 1-2
     Route: 048
     Dates: start: 201911, end: 201912

REACTIONS (6)
  - Sepsis [Unknown]
  - Infusion [Unknown]
  - Hypertension [Unknown]
  - Body temperature decreased [Unknown]
  - Pneumonia [Unknown]
  - Hypotension [Unknown]

NARRATIVE: CASE EVENT DATE: 202001
